FAERS Safety Report 6849427-9 (Version None)
Quarter: 2010Q3

REPORT INFORMATION
  Report Type: 
  Country: None (occurrence: None)
  Receive Date: 20100716
  Receipt Date: 20071008
  Transmission Date: 20110219
  Serious: No
  Sender: FDA-Public Use
  Company Number: US-PFIZER INC-2007082239

PATIENT
  Sex: Female

DRUGS (11)
  1. CHANTIX [Suspect]
     Indication: SMOKING CESSATION THERAPY
     Dates: end: 20071006
  2. ENALAPRIL MALEATE [Concomitant]
  3. LEVOTHYROXINE SODIUM [Concomitant]
  4. ACTONEL [Concomitant]
  5. ASPIRINE [Concomitant]
  6. MUCINEX [Concomitant]
  7. ALPRAZOLAM [Concomitant]
  8. VITAMINS [Concomitant]
  9. ANTIOXIDANTS [Concomitant]
  10. CYANOCOBALAMIN [Concomitant]
  11. CALCIUM [Concomitant]

REACTIONS (4)
  - HEADACHE [None]
  - NAUSEA [None]
  - THERAPEUTIC RESPONSE UNEXPECTED [None]
  - THINKING ABNORMAL [None]
